FAERS Safety Report 6929572-X (Version None)
Quarter: 2010Q3

REPORT INFORMATION
  Report Type: 
  Country: None (occurrence: None)
  Receive Date: 20100813
  Receipt Date: 20100804
  Transmission Date: 20110219
  Serious: Yes (Other)
  Sender: FDA-Public Use
  Company Number: US-001244

PATIENT
  Sex: Male
  Weight: 112 kg

DRUGS (5)
  1. KUVAN [Suspect]
     Indication: PHENYLKETONURIA
     Dosage: 1800 MG QD ORAL
     Route: 048
     Dates: start: 20081201
  2. COMTAN [Concomitant]
  3. ARTANE [Concomitant]
  4. SINEMET [Concomitant]
  5. ATIVAN [Concomitant]

REACTIONS (1)
  - PARKINSON'S DISEASE [None]
